FAERS Safety Report 16103546 (Version 1)
Quarter: 2019Q1

REPORT INFORMATION
  Report Type: Spontaneous
  Country: US (occurrence: US)
  Receive Date: 20190322
  Receipt Date: 20190322
  Transmission Date: 20190418
  Serious: No
  Sender: FDA-Public Use
  Company Number: US-SA-2019SA073301

PATIENT
  Sex: Female

DRUGS (13)
  1. SELENIUM [Concomitant]
     Active Substance: SELENIUM
  2. BIOTIN [Concomitant]
     Active Substance: BIOTIN
  3. MAGNESIUM [Concomitant]
     Active Substance: MAGNESIUM
  4. COPAXONE [Concomitant]
     Active Substance: GLATIRAMER ACETATE
  5. COQ10 [TOCOPHERYL ACETATE;UBIDECARENONE] [Concomitant]
  6. FISH OIL [Concomitant]
     Active Substance: FISH OIL
  7. VITAMIN B COMPLEX [Concomitant]
     Active Substance: CYANOCOBALAMIN\DEXPANTHENOL\NIACINAMIDE\PYRIDOXINE HYDROCHLORIDE\RIBOFLAVIN 5^-PHOSPHATE SODIUM\THIAMINE HYDROCHLORIDE\VITAMIN B COMPLEX
  8. CURCUMIN [Concomitant]
     Active Substance: CURCUMIN
  9. PROBIOTIC 10 [Concomitant]
  10. DUPIXENT [Suspect]
     Active Substance: DUPILUMAB
     Indication: ASTHMA
     Dosage: 600 MG, 1X
     Route: 058
  11. VITAMIN C + ROSEHIP [Concomitant]
  12. VITAMIN D3 [Concomitant]
     Active Substance: CHOLECALCIFEROL
  13. CALCIUM [Concomitant]
     Active Substance: CALCIUM

REACTIONS (1)
  - Gastroenteritis viral [Unknown]
